FAERS Safety Report 12723751 (Version 1)
Quarter: 2016Q3

REPORT INFORMATION
  Report Type: Spontaneous
  Country: US (occurrence: US)
  Receive Date: 20160908
  Receipt Date: 20160908
  Transmission Date: 20161109
  Serious: No
  Sender: FDA-Public Use
  Company Number: PHEH2016US022369

PATIENT

DRUGS (2)
  1. LENVATINIB [Concomitant]
     Active Substance: LENVATINIB
     Indication: MALIGNANT NEOPLASM PROGRESSION
     Dosage: 18 MG, QD
     Route: 048
  2. AFINITOR [Suspect]
     Active Substance: EVEROLIMUS
     Indication: MALIGNANT NEOPLASM PROGRESSION
     Route: 065

REACTIONS (7)
  - Nausea [Recovering/Resolving]
  - Fatigue [Recovering/Resolving]
  - Epistaxis [Recovering/Resolving]
  - Dizziness [Recovering/Resolving]
  - Nasal discomfort [Recovering/Resolving]
  - Rhinorrhoea [Recovering/Resolving]
  - Cough [Recovering/Resolving]
